FAERS Safety Report 25168490 (Version 1)
Quarter: 2025Q2

REPORT INFORMATION
  Report Type: Spontaneous
  Country: US (occurrence: US)
  Receive Date: 20250407
  Receipt Date: 20250407
  Transmission Date: 20250717
  Serious: No
  Sender: FERRING
  Company Number: US-FERRINGPH-2025FE00312

PATIENT
  Sex: Female

DRUGS (1)
  1. ADSTILADRIN [Suspect]
     Active Substance: NADOFARAGENE FIRADENOVEC-VNCG
     Indication: Product used for unknown indication
     Route: 065

REACTIONS (2)
  - Vulvovaginal discomfort [Recovered/Resolved]
  - Instillation site discharge [Recovered/Resolved]
